FAERS Safety Report 5794339-5 (Version None)
Quarter: 2008Q2

REPORT INFORMATION
  Report Type: 
  Country: None (occurrence: None)
  Receive Date: 20080625
  Receipt Date: 20080610
  Transmission Date: 20081010
  Serious: Yes (Hospitalization)
  Sender: FDA-Public Use
  Company Number: 2008AL006722

PATIENT
  Age: 94 Year
  Sex: Female
  Weight: 56.246 kg

DRUGS (10)
  1. DIGOXIN [Suspect]
     Indication: ARRHYTHMIA
     Dosage: 0.125 MG DAILY PO
     Route: 048
  2. LEVOTHYROXINE SODIUM [Concomitant]
  3. AMIODARONE HCL [Concomitant]
  4. ACIPHEX [Concomitant]
  5. FUROSIMIDE [Concomitant]
  6. POTASSIUM CHLORIDE [Concomitant]
  7. LEXAPRO [Concomitant]
  8. METOPROLOL SUCCINATE [Concomitant]
  9. ASPIRIN [Concomitant]
  10. CARAFATE [Concomitant]

REACTIONS (14)
  - ANXIETY [None]
  - CARDIAC FAILURE CONGESTIVE [None]
  - CONFUSIONAL STATE [None]
  - DEPRESSION [None]
  - DIARRHOEA [None]
  - DIZZINESS [None]
  - GAIT DISTURBANCE [None]
  - HALLUCINATION [None]
  - HEART RATE INCREASED [None]
  - NAUSEA [None]
  - RESTLESS LEGS SYNDROME [None]
  - THERAPEUTIC AGENT TOXICITY [None]
  - VISUAL DISTURBANCE [None]
  - VOMITING [None]
